FAERS Safety Report 24982958 (Version 2)
Quarter: 2025Q2

REPORT INFORMATION
  Report Type: Spontaneous
  Country: US (occurrence: US)
  Receive Date: 20250218
  Receipt Date: 20250523
  Transmission Date: 20250716
  Serious: Yes (Other)
  Sender: JOHNSON AND JOHNSON
  Company Number: US-JNJFOC-20250219810

PATIENT
  Age: 60 Year
  Sex: Female

DRUGS (2)
  1. STELARA [Suspect]
     Active Substance: USTEKINUMAB
     Indication: Crohn^s disease
     Dosage: TOOK 13TH DOSE ON 28-JAN-2025
     Route: 058
     Dates: start: 202301
  2. STELARA [Suspect]
     Active Substance: USTEKINUMAB

REACTIONS (11)
  - Nerve injury [Unknown]
  - Blood urine present [Unknown]
  - Tenderness [Unknown]
  - Sensory loss [Unknown]
  - Cognitive disorder [Unknown]
  - Vision blurred [Unknown]
  - Back pain [Unknown]
  - Alopecia [Unknown]
  - Hypertension [Unknown]
  - Skin irritation [Unknown]
  - Hypotension [Unknown]

NARRATIVE: CASE EVENT DATE: 20240401
